FAERS Safety Report 25346757 (Version 1)
Quarter: 2025Q2

REPORT INFORMATION
  Report Type: Spontaneous
  Country: CN (occurrence: CN)
  Receive Date: 20250522
  Receipt Date: 20250522
  Transmission Date: 20250716
  Serious: Yes (Other)
  Sender: JOHNSON AND JOHNSON
  Company Number: CN-JNJFOC-20250520877

PATIENT
  Age: 58 Year
  Sex: Male
  Weight: 80 kg

DRUGS (1)
  1. DARZALEX [Suspect]
     Active Substance: DARATUMUMAB
     Indication: Plasma cell myeloma
     Route: 065
     Dates: start: 20250221, end: 20250221

REACTIONS (6)
  - Wheezing [Recovering/Resolving]
  - Blood pressure increased [Recovering/Resolving]
  - Oxygen consumption decreased [Recovering/Resolving]
  - Infusion related reaction [Recovering/Resolving]
  - Tachycardia [Recovering/Resolving]
  - Oedema [Recovering/Resolving]

NARRATIVE: CASE EVENT DATE: 20250221
